FAERS Safety Report 23400614 (Version 1)
Quarter: 2024Q1

REPORT INFORMATION
  Report Type: Spontaneous
  Country: DE (occurrence: None)
  Receive Date: 20240115
  Receipt Date: 20240115
  Transmission Date: 20240410
  Serious: Yes (Other)
  Sender: FDA-Public Use
  Company Number: DE-ROCHE-3468642

PATIENT
  Age: 6 Decade
  Sex: Female

DRUGS (12)
  1. VABYSMO [Suspect]
     Active Substance: FARICIMAB\FARICIMAB-SVOA
     Indication: Neovascular age-related macular degeneration
     Route: 050
  2. BEOVU [Suspect]
     Active Substance: BROLUCIZUMAB-DBLL
     Indication: Neovascular age-related macular degeneration
     Route: 050
     Dates: start: 20221109
  3. BEOVU [Suspect]
     Active Substance: BROLUCIZUMAB-DBLL
     Indication: Neovascular age-related macular degeneration
  4. DULOXETINE [Concomitant]
     Active Substance: DULOXETINE
     Indication: Depression
     Dates: start: 202304
  5. AFLIBERCEPT [Concomitant]
     Active Substance: AFLIBERCEPT
     Indication: Age-related macular degeneration
     Route: 050
     Dates: start: 20220328, end: 20220913
  6. ASPIRIN [Concomitant]
     Active Substance: ASPIRIN
     Route: 048
     Dates: start: 201801
  7. RAMIPRIL [Concomitant]
     Active Substance: RAMIPRIL
     Indication: Hypertension
     Route: 048
     Dates: start: 202011, end: 202306
  8. ESCITALOPRAM [Concomitant]
     Active Substance: ESCITALOPRAM OXALATE
     Indication: Depression
     Route: 048
     Dates: start: 202212, end: 202304
  9. METOPROLOL [Concomitant]
     Active Substance: METOPROLOL
     Indication: Hypertension
     Route: 048
     Dates: start: 202305
  10. CALCIVIT (GERMANY) [Concomitant]
     Dosage: 600 MG/400
  11. PANTOPRAZOLE [Concomitant]
     Active Substance: PANTOPRAZOLE
     Route: 048
  12. TRIAMCINOLONE [Concomitant]
     Active Substance: TRIAMCINOLONE

REACTIONS (9)
  - Ocular vasculitis [Unknown]
  - Ocular vasculitis [Unknown]
  - Retinal vasculitis [Recovered/Resolved]
  - Optic disc disorder [Recovered/Resolved]
  - Episcleritis [Recovering/Resolving]
  - Scleritis [Recovering/Resolving]
  - Intraocular pressure increased [Recovered/Resolved]
  - Retinal vasculitis [Recovering/Resolving]
  - Optic disc disorder [Recovering/Resolving]

NARRATIVE: CASE EVENT DATE: 20230207
